FAERS Safety Report 16292404 (Version 2)
Quarter: 2021Q1

REPORT INFORMATION
  Report Type: Spontaneous
  Country: US (occurrence: US)
  Receive Date: 20190509
  Receipt Date: 20210226
  Transmission Date: 20210419
  Serious: Yes (Death, Other)
  Sender: FDA-Public Use
  Company Number: US-ASTRAZENECA-2019SE66909

PATIENT
  Age: 20751 Day
  Sex: Female

DRUGS (84)
  1. PRILOSEC [Suspect]
     Active Substance: OMEPRAZOLE MAGNESIUM
     Indication: GASTROOESOPHAGEAL REFLUX DISEASE
     Dosage: GENERIC
     Route: 065
     Dates: start: 2012
  2. ATORVASTATIN [Concomitant]
     Active Substance: ATORVASTATIN
     Indication: BLOOD CHOLESTEROL INCREASED
  3. LIDOCAINE. [Concomitant]
     Active Substance: LIDOCAINE
  4. FOLIC ACID. [Concomitant]
     Active Substance: FOLIC ACID
  5. OXYCODONE [Concomitant]
     Active Substance: OXYCODONE
  6. DICLOXACILLIN [Concomitant]
     Active Substance: DICLOXACILLIN
  7. FLOXIN [Concomitant]
     Active Substance: OFLOXACIN
  8. POLYVIDONE [Concomitant]
  9. ERYTHROMYCIN. [Concomitant]
     Active Substance: ERYTHROMYCIN
  10. NEXIUM [Suspect]
     Active Substance: ESOMEPRAZOLE MAGNESIUM
     Indication: GASTROOESOPHAGEAL REFLUX DISEASE
     Route: 048
     Dates: start: 200601, end: 201512
  11. LANTUS [Concomitant]
     Active Substance: INSULIN GLARGINE
  12. ALLOPURINOL. [Concomitant]
     Active Substance: ALLOPURINOL
  13. OXYCODONE HYDROCHLORIDE. [Concomitant]
     Active Substance: OXYCODONE HYDROCHLORIDE
  14. PRAVASTATIN SODIUM. [Concomitant]
     Active Substance: PRAVASTATIN SODIUM
  15. BENZOCAINE. [Concomitant]
     Active Substance: BENZOCAINE
  16. DOCUSATE SODIUM. [Concomitant]
     Active Substance: DOCUSATE SODIUM
  17. VASOPRESSIN. [Concomitant]
     Active Substance: VASOPRESSIN
  18. SCOPOLAMINE [Concomitant]
     Active Substance: SCOPOLAMINE
  19. METHYLPREDNISOLONE SODIUM SUCCINATE. [Concomitant]
     Active Substance: METHYLPREDNISOLONE SODIUM SUCCINATE
  20. HUMALOG [Concomitant]
     Active Substance: INSULIN LISPRO
  21. ZANTAC [Concomitant]
     Active Substance: RANITIDINE HYDROCHLORIDE
  22. PREVNAR [Concomitant]
     Active Substance: PNEUMOCOCCAL 7-VALENT CONJUGATE VACCINE (DIPHTHERIA CRM197 PROTEIN)
  23. TETANUS [Concomitant]
     Active Substance: TETANUS ANTITOXIN
  24. IODINE. [Concomitant]
     Active Substance: IODINE
  25. HYDROCORTISONE SODIUM SUCCINATE [Concomitant]
     Active Substance: HYDROCORTISONE SODIUM SUCCINATE
  26. DECADRON [Concomitant]
     Active Substance: DEXAMETHASONE
  27. CEFAZOLIN [Concomitant]
     Active Substance: CEFAZOLIN
  28. PREDNISOLONE. [Concomitant]
     Active Substance: PREDNISOLONE
  29. GABAPENTIN. [Concomitant]
     Active Substance: GABAPENTIN
  30. BIDIL [Concomitant]
     Active Substance: HYDRALAZINE HYDROCHLORIDE\ISOSORBIDE DINITRATE
  31. ALBUTEROL HFA [Concomitant]
     Active Substance: ALBUTEROL SULFATE
  32. VITAMIN D [Concomitant]
     Active Substance: VITAMIN D NOS
  33. CARDURA [Concomitant]
     Active Substance: DOXAZOSIN MESYLATE
  34. LEVAQUIN [Concomitant]
     Active Substance: LEVOFLOXACIN
  35. ADVIL [Concomitant]
     Active Substance: IBUPROFEN
  36. MAGNESIUM OXIDE. [Concomitant]
     Active Substance: MAGNESIUM OXIDE
  37. HYDROCHLOROTHIAZIDE. [Concomitant]
     Active Substance: HYDROCHLOROTHIAZIDE
  38. FLONASE [Concomitant]
     Active Substance: FLUTICASONE PROPIONATE
  39. PREDNISONE. [Concomitant]
     Active Substance: PREDNISONE
  40. PRILOSEC OTC [Suspect]
     Active Substance: OMEPRAZOLE MAGNESIUM
     Indication: GASTROOESOPHAGEAL REFLUX DISEASE
     Route: 048
     Dates: start: 200601, end: 201512
  41. ISOSORBIDE MONONITRATE. [Concomitant]
     Active Substance: ISOSORBIDE MONONITRATE
  42. FERROUS SULFATE. [Concomitant]
     Active Substance: FERROUS SULFATE
  43. FENTANYL. [Concomitant]
     Active Substance: FENTANYL
  44. TRIAMTERENE. [Concomitant]
     Active Substance: TRIAMTERENE
  45. TOPROL XL [Concomitant]
     Active Substance: METOPROLOL SUCCINATE
  46. TIZANIDINE HYDROCHLORIDE. [Concomitant]
     Active Substance: TIZANIDINE HYDROCHLORIDE
  47. POTASSIUM CHLORIDE. [Concomitant]
     Active Substance: POTASSIUM CHLORIDE
  48. LACTATED RINGERS SOLUTION [Concomitant]
     Active Substance: CALCIUM CHLORIDE\POTASSIUM CHLORIDE\SODIUM CHLORIDE\SODIUM LACTATE
  49. ROCURONIUM [Concomitant]
     Active Substance: ROCURONIUM BROMIDE
  50. PREVACID [Suspect]
     Active Substance: LANSOPRAZOLE
     Indication: GASTROOESOPHAGEAL REFLUX DISEASE
     Dosage: GENERIC
     Route: 065
  51. AMLODIPINE BESYLATE. [Concomitant]
     Active Substance: AMLODIPINE BESYLATE
  52. BYDUREON [Concomitant]
     Active Substance: EXENATIDE
  53. ATROPINE SULFATE. [Concomitant]
     Active Substance: ATROPINE SULFATE
  54. METFORMIN HYDROCHLORIDE. [Concomitant]
     Active Substance: METFORMIN HYDROCHLORIDE
  55. EQUATE [Concomitant]
  56. BUTRANS [Concomitant]
     Active Substance: BUPRENORPHINE
  57. ENEMA (SODIUM PHOSPHATE, DIBASIC\SODIUM PHOSPHATE, MONOBASIC) [Concomitant]
     Active Substance: SODIUM PHOSPHATE, DIBASIC\SODIUM PHOSPHATE, MONOBASIC
  58. CITRATE OF MAGNESIUM [Concomitant]
     Active Substance: MAGNESIUM CITRATE
  59. PREVACID [Suspect]
     Active Substance: LANSOPRAZOLE
     Indication: GASTROOESOPHAGEAL REFLUX DISEASE
     Route: 065
     Dates: start: 200601, end: 201512
  60. FUROSEMIDE. [Concomitant]
     Active Substance: FUROSEMIDE
     Indication: OEDEMA
  61. LEVETIRACETAMINE [Concomitant]
  62. GLIPIZIDE. [Concomitant]
     Active Substance: GLIPIZIDE
  63. ENBREL [Concomitant]
     Active Substance: ETANERCEPT
  64. METHOTREXATE. [Concomitant]
     Active Substance: METHOTREXATE
  65. GLUCOSE [Concomitant]
     Active Substance: DEXTROSE
  66. OXYCODONE?ACETAMINOPHEN [Concomitant]
     Active Substance: ACETAMINOPHEN\OXYCODONE HYDROCHLORIDE
  67. POLYETHYLENE GLYCOL [Concomitant]
     Active Substance: POLYETHYLENE GLYCOLS
  68. MIDAZOLAM. [Concomitant]
     Active Substance: MIDAZOLAM
  69. EPINEPHRINE. [Concomitant]
     Active Substance: EPINEPHRINE
  70. PROPOFOL. [Concomitant]
     Active Substance: PROPOFOL
  71. PRILOSEC [Suspect]
     Active Substance: OMEPRAZOLE MAGNESIUM
     Indication: GASTROOESOPHAGEAL REFLUX DISEASE
     Route: 048
     Dates: start: 200601, end: 201512
  72. PROTONIX [Suspect]
     Active Substance: PANTOPRAZOLE SODIUM
     Indication: GASTROOESOPHAGEAL REFLUX DISEASE
     Route: 065
  73. PROTONIX [Suspect]
     Active Substance: PANTOPRAZOLE SODIUM
     Indication: GASTROOESOPHAGEAL REFLUX DISEASE
     Dosage: GENERIC
     Route: 065
     Dates: start: 2014
  74. RENAGEL [Concomitant]
     Active Substance: SEVELAMER HYDROCHLORIDE
  75. CARVEDILOL. [Concomitant]
     Active Substance: CARVEDILOL
  76. AMMONIUM LACTATE. [Concomitant]
     Active Substance: AMMONIUM LACTATE
  77. HYDRALAZINE HYDROCHLORIDE. [Concomitant]
     Active Substance: HYDRALAZINE HYDROCHLORIDE
  78. VYTORIN [Concomitant]
     Active Substance: EZETIMIBE\SIMVASTATIN
  79. ZOSTAVAX [Concomitant]
     Active Substance: VARICELLA-ZOSTER VIRUS STRAIN OKA/MERCK LIVE ANTIGEN
  80. SUCRALFATE. [Concomitant]
     Active Substance: SUCRALFATE
  81. LISINOPRIL?HYDROCHLOROTHAIZIDE [Concomitant]
  82. RABEPRAZOLE [Concomitant]
     Active Substance: RABEPRAZOLE
  83. CALCIUM CITRATE [Concomitant]
     Active Substance: CALCIUM CITRATE
  84. SENNA [Concomitant]
     Active Substance: SENNA LEAF\SENNOSIDES\SENNOSIDES A AND B

REACTIONS (9)
  - Hyperparathyroidism secondary [Unknown]
  - Chronic kidney disease [Not Recovered/Not Resolved]
  - Acute kidney injury [Unknown]
  - Chronic kidney disease-mineral and bone disorder [Unknown]
  - Nephrogenic anaemia [Unknown]
  - End stage renal disease [Not Recovered/Not Resolved]
  - Death [Fatal]
  - Azotaemia [Unknown]
  - Renal failure [Unknown]

NARRATIVE: CASE EVENT DATE: 20141217
